FAERS Safety Report 17108187 (Version 1)
Quarter: 2019Q4

REPORT INFORMATION
  Report Type: Spontaneous
  Country: CH (occurrence: CH)
  Receive Date: 20191203
  Receipt Date: 20191203
  Transmission Date: 20200122
  Serious: Yes (Hospitalization)
  Sender: FDA-Public Use
  Company Number: CH-TEVA-2019-CH-1145603

PATIENT
  Sex: Male
  Weight: 118 kg

DRUGS (4)
  1. XENALON [Suspect]
     Active Substance: SPIRONOLACTONE
     Indication: CARDIAC FAILURE
     Route: 048
  2. ZESTRIL [Suspect]
     Active Substance: LISINOPRIL
     Indication: CARDIAC FAILURE
     Route: 048
  3. TOREM [Suspect]
     Active Substance: TORSEMIDE
     Indication: CARDIAC FAILURE
     Route: 048
  4. PONSTAN [Suspect]
     Active Substance: MEFENAMIC ACID
     Indication: BACK PAIN
     Dosage: AS NECESSARY
     Route: 048

REACTIONS (1)
  - Acute kidney injury [Recovering/Resolving]
